FAERS Safety Report 9410601 (Version 3)
Quarter: 2013Q4

REPORT INFORMATION
  Report Type: Spontaneous
  Country: US (occurrence: US)
  Receive Date: 20130719
  Receipt Date: 20131108
  Transmission Date: 20140711
  Serious: Yes (Other)
  Sender: FDA-Public Use
  Company Number: US-BRISTOL-MYERS SQUIBB COMPANY-19108760

PATIENT
  Sex: Male

DRUGS (1)
  1. ONGLYZA TABS [Suspect]
     Indication: TYPE 2 DIABETES MELLITUS
     Dosage: BEFORE BEDTIME

REACTIONS (8)
  - Blood glucose fluctuation [Unknown]
  - Mobility decreased [Unknown]
  - Muscle disorder [Unknown]
  - Myalgia [Unknown]
  - Nerve injury [Unknown]
  - Asthenia [Unknown]
  - Pain in extremity [Unknown]
  - Muscle spasms [Unknown]
